FAERS Safety Report 7260220-8 (Version None)
Quarter: 2011Q1

REPORT INFORMATION
  Report Type: 
  Country: None (occurrence: None)
  Receive Date: 20110130
  Receipt Date: 20100903
  Transmission Date: 20110831
  Serious: No
  Sender: FDA-Public Use
  Company Number: US-ABBOTT-10P-163-0669881-00

PATIENT
  Sex: Male
  Weight: 81.266 kg

DRUGS (1)
  1. HUMIRA [Suspect]
     Indication: PSORIASIS
     Dates: start: 20100701

REACTIONS (3)
  - DEVICE MALFUNCTION [None]
  - PRURITUS [None]
  - DRUG INEFFECTIVE [None]
